FAERS Safety Report 5046932-5 (Version None)
Quarter: 2006Q2

REPORT INFORMATION
  Report Type: 
  Country: None (occurrence: None)
  Receive Date: 20060630
  Receipt Date: 20060623
  Transmission Date: 20061013
  Serious: Yes (Other)
  Sender: FDA-Public Use
  Company Number: 2006079965

PATIENT
  Sex: Male

DRUGS (1)
  1. XANAX [Suspect]

REACTIONS (3)
  - DIFFICULTY IN WALKING [None]
  - KNEE ARTHROPLASTY [None]
  - WEIGHT INCREASED [None]
